FAERS Safety Report 21076362 (Version 1)
Quarter: 2022Q3

REPORT INFORMATION
  Report Type: Spontaneous
  Country: US (occurrence: None)
  Receive Date: 20220713
  Receipt Date: 20220713
  Transmission Date: 20221026
  Serious: Yes (Other)
  Sender: FDA-Public Use
  Company Number: None

PATIENT
  Age: 52 Year
  Sex: Female
  Weight: 63 kg

DRUGS (1)
  1. VICKS VAPOCOOL SORE THROAT [Suspect]
     Active Substance: BENZOCAINE\MENTHOL
     Indication: Gingival pain
     Dosage: OTHER QUANTITY : 1 SPRAY(S);?FREQUENCY : AS NEEDED;?
     Route: 048
     Dates: start: 20220619, end: 20220619

REACTIONS (3)
  - Dyspnoea [None]
  - Mouth swelling [None]
  - Contraindicated product administered [None]

NARRATIVE: CASE EVENT DATE: 20220616
